FAERS Safety Report 13452079 (Version 2)
Quarter: 2017Q2

REPORT INFORMATION
  Report Type: Report from Study
  Country: CA (occurrence: CA)
  Receive Date: 20170418
  Receipt Date: 20170510
  Transmission Date: 20170830
  Serious: Yes (Other)
  Sender: FDA-Public Use
  Company Number: CA-JNJFOC-20170412371

PATIENT
  Age: 45 Year
  Sex: Male

DRUGS (1)
  1. SIMPONI [Suspect]
     Active Substance: GOLIMUMAB
     Indication: RHEUMATOID ARTHRITIS
     Route: 058
     Dates: start: 20160211

REACTIONS (4)
  - Pneumonia [Recovering/Resolving]
  - Off label use [Unknown]
  - Viral upper respiratory tract infection [Unknown]
  - Product use issue [Unknown]

NARRATIVE: CASE EVENT DATE: 20160211
